FAERS Safety Report 21299346 (Version 1)
Quarter: 2022Q3

REPORT INFORMATION
  Report Type: Report from Study
  Country: DE (occurrence: DE)
  Receive Date: 20220906
  Receipt Date: 20220906
  Transmission Date: 20221027
  Serious: Yes (Other)
  Sender: FDA-Public Use
  Company Number: DE-GLAXOSMITHKLINE-DECH2022GSK031491

PATIENT

DRUGS (1)
  1. IBUPROFEN [Suspect]
     Active Substance: IBUPROFEN
     Indication: Migraine
     Dosage: 300 (3 DAYS IN TOTAL)
     Route: 065

REACTIONS (4)
  - Oligohydramnios [Unknown]
  - Foetal growth restriction [Unknown]
  - Live birth [Unknown]
  - Exposure during pregnancy [Unknown]
